FAERS Safety Report 25878828 (Version 1)
Quarter: 2025Q4

REPORT INFORMATION
  Report Type: Spontaneous
  Country: US (occurrence: US)
  Receive Date: 20251003
  Receipt Date: 20251003
  Transmission Date: 20260117
  Serious: Yes (Other)
  Sender: RECKITT BENCKISER
  Company Number: US-INDIVIOR US-INDV-177077-2025

PATIENT

DRUGS (3)
  1. SUBOXONE [Suspect]
     Active Substance: BUPRENORPHINE HYDROCHLORIDE\NALOXONE HYDROCHLORIDE
     Indication: Drug use disorder
     Dosage: UNK
     Route: 065
     Dates: start: 202101
  2. BUPRENORPHINE [Suspect]
     Active Substance: BUPRENORPHINE
     Indication: Drug use disorder
     Dosage: 8 MILLIGRAM, QD
     Route: 065
  3. NICOTINE [Suspect]
     Active Substance: NICOTINE
     Indication: Product used for unknown indication
     Dosage: UNK
     Route: 055

REACTIONS (5)
  - Amniotic cavity infection [Recovered/Resolved]
  - Placental disorder [Recovered/Resolved]
  - Gestational hypertension [Recovered/Resolved]
  - Substance abuse [Unknown]
  - Maternal exposure during pregnancy [Recovered/Resolved]

NARRATIVE: CASE EVENT DATE: 20210101
